FAERS Safety Report 23538677 (Version 1)
Quarter: 2024Q1

REPORT INFORMATION
  Report Type: Spontaneous
  Country: IT (occurrence: IT)
  Receive Date: 20240219
  Receipt Date: 20240219
  Transmission Date: 20240410
  Serious: Yes (Life-Threatening)
  Sender: FDA-Public Use
  Company Number: None

PATIENT
  Age: 86 Year
  Sex: Female
  Weight: 60 kg

DRUGS (4)
  1. LORAZEPAM [Suspect]
     Active Substance: LORAZEPAM
     Indication: Psychomotor hyperactivity
     Route: 048
     Dates: start: 202309, end: 202309
  2. ACETAMINOPHEN\OXYCODONE HYDROCHLORIDE [Suspect]
     Active Substance: ACETAMINOPHEN\OXYCODONE HYDROCHLORIDE
     Indication: Pain
     Dosage: DEPALGOS 5MG + 325 MG TABLETS X2 TIMES A DAY
     Route: 048
     Dates: start: 202309, end: 202309
  3. BROTIZOLAM [Suspect]
     Active Substance: BROTIZOLAM
     Indication: Psychomotor hyperactivity
     Route: 048
     Dates: start: 202309, end: 202309
  4. TRAZODONE [Suspect]
     Active Substance: TRAZODONE HYDROCHLORIDE
     Indication: Psychomotor hyperactivity
     Route: 048
     Dates: start: 202309, end: 202309

REACTIONS (2)
  - Respiratory failure [Recovering/Resolving]
  - Depressed level of consciousness [Recovering/Resolving]

NARRATIVE: CASE EVENT DATE: 20230922
